FAERS Safety Report 12092368 (Version 1)
Quarter: 2016Q1

REPORT INFORMATION
  Report Type: Spontaneous
  Country: US (occurrence: None)
  Receive Date: 20160217
  Receipt Date: 20160217
  Transmission Date: 20160526
  Serious: No
  Sender: FDA-Public Use
  Company Number: None

PATIENT
  Age: 44 Year
  Sex: Female

DRUGS (1)
  1. MAKENA [Suspect]
     Active Substance: HYDROXYPROGESTERONE CAPROATE
     Indication: PREMATURE LABOUR
     Dosage: 1 ML (250 MG) QW IM
     Route: 030
     Dates: start: 20160126, end: 20160212

REACTIONS (3)
  - Rash generalised [None]
  - Injection site inflammation [None]
  - Hypersensitivity [None]

NARRATIVE: CASE EVENT DATE: 20160212
